FAERS Safety Report 8006470-4 (Version None)
Quarter: 2011Q4

REPORT INFORMATION
  Report Type: 
  Country: None (occurrence: None)
  Receive Date: 20111226
  Receipt Date: 20111018
  Transmission Date: 20120403
  Serious: Yes (Other)
  Sender: FDA-Public Use
  Company Number: PHHY2011NL111504

PATIENT
  Sex: Female

DRUGS (3)
  1. ZOLEDRONOC ACID [Suspect]
     Dosage: 5 MG, PER YEAR
     Route: 042
     Dates: start: 20101108
  2. ZOLEDRONOC ACID [Suspect]
     Dosage: 5 MG, PER YEAR
     Route: 042
     Dates: start: 20111018
  3. PREDNISONE [Concomitant]

REACTIONS (2)
  - NON-HODGKIN'S LYMPHOMA RECURRENT [None]
  - BONE PAIN [None]
